FAERS Safety Report 10045846 (Version 1)
Quarter: 2014Q1

REPORT INFORMATION
  Report Type: Spontaneous
  Country: FR (occurrence: FR)
  Receive Date: 20140329
  Receipt Date: 20140329
  Transmission Date: 20141002
  Serious: Yes (Hospitalization)
  Sender: FDA-Public Use
  Company Number: FR-ROCHE-1369579

PATIENT
  Age: 59 Year
  Sex: Male

DRUGS (7)
  1. ROCEPHINE [Suspect]
     Indication: BRONCHOPNEUMOPATHY
     Route: 042
     Dates: start: 20130925, end: 20131012
  2. CIFLOX (FRANCE) [Suspect]
     Indication: LUNG DISORDER
     Route: 048
     Dates: start: 20130925, end: 20131017
  3. ALLOPURINOL [Concomitant]
     Route: 048
  4. KARDEGIC [Concomitant]
     Route: 048
  5. INEGY [Concomitant]
     Route: 048
  6. TAREG [Concomitant]
     Route: 048
  7. DAFALGAN [Concomitant]
     Route: 048

REACTIONS (3)
  - Confusional state [Recovered/Resolved]
  - Hallucination, auditory [Recovered/Resolved]
  - Hallucination, visual [Recovered/Resolved]
